FAERS Safety Report 5832209-4 (Version None)
Quarter: 2008Q3

REPORT INFORMATION
  Report Type: 
  Country: None (occurrence: None)
  Receive Date: 20080730
  Receipt Date: 20080721
  Transmission Date: 20090109
  Serious: Yes (Other)
  Sender: FDA-Public Use
  Company Number: 2008AP000347

PATIENT
  Age: 46 Year
  Sex: Female

DRUGS (16)
  1. PAROXETINE HCL [Suspect]
     Dosage: PO; QD, PO; QD, PO; QD, PO;QD; 10 MG,PO;5MG; TAB;PO;QD,10MG,TAB,PO;QD
     Route: 048
     Dates: start: 20000107, end: 20021001
  2. PAROXETINE HCL [Suspect]
     Dosage: PO; QD, PO; QD, PO; QD, PO;QD; 10 MG,PO;5MG; TAB;PO;QD,10MG,TAB,PO;QD
     Route: 048
     Dates: start: 20050101, end: 20050609
  3. PAROXETINE HCL [Suspect]
     Dosage: PO; QD, PO; QD, PO; QD, PO;QD; 10 MG,PO;5MG; TAB;PO;QD,10MG,TAB,PO;QD
     Route: 048
     Dates: start: 20000107
  4. PAROXETINE HCL [Suspect]
     Dosage: PO; QD, PO; QD, PO; QD, PO;QD; 10 MG,PO;5MG; TAB;PO;QD,10MG,TAB,PO;QD
     Route: 048
     Dates: start: 20041118
  5. PAROXETINE HCL [Suspect]
     Dosage: PO; QD, PO; QD, PO; QD, PO;QD; 10 MG,PO;5MG; TAB;PO;QD,10MG,TAB,PO;QD
     Route: 048
     Dates: start: 20070901
  6. PAROXETINE HCL [Suspect]
     Dosage: PO; QD, PO; QD, PO; QD, PO;QD; 10 MG,PO;5MG; TAB;PO;QD,10MG,TAB,PO;QD
     Route: 048
     Dates: start: 20070901
  7. PAROXETINE HCL [Suspect]
     Dosage: PO; QD, PO; QD, PO; QD, PO;QD; 10 MG,PO;5MG; TAB;PO;QD,10MG,TAB,PO;QD
     Route: 048
     Dates: start: 20070918
  8. CITALOPRAM HYDROBROMIDE [Concomitant]
  9. IMIPRAMINE [Concomitant]
  10. AMITRIPTLINE HYDROCHLORIDE TAB [Concomitant]
  11. ANTIHISTRAMINES (ANITHISTRAMINES) [Concomitant]
  12. HYDROXYCHLOROQUINE SULFATE [Concomitant]
  13. MYCOPHENOLATE MOFETIL [Concomitant]
  14. NAPROXEN [Concomitant]
  15. OMEPRAZOLE [Concomitant]
  16. PERINDOPRIL ERBUMINE [Concomitant]

REACTIONS (15)
  - AGGRESSION [None]
  - AGITATION [None]
  - DIVERTICULITIS [None]
  - DIZZINESS [None]
  - DRUG WITHDRAWAL SYNDROME [None]
  - GASTRIC ULCER [None]
  - HYPERHIDROSIS [None]
  - JOINT STIFFNESS [None]
  - MUSCULOSKELETAL CHEST PAIN [None]
  - NAUSEA [None]
  - PAIN IN EXTREMITY [None]
  - SHRINKING LUNG SYNDROME [None]
  - SUPRAVENTRICULAR EXTRASYSTOLES [None]
  - SYSTEMIC LUPUS ERYTHEMATOSUS [None]
  - VOMITING [None]
